FAERS Safety Report 4378713-X (Version None)
Quarter: 2004Q2

REPORT INFORMATION
  Report Type: 
  Country: None (occurrence: None)
  Receive Date: 20040610
  Receipt Date: 20040608
  Transmission Date: 20050107
  Serious: Yes (Hospitalization)
  Sender: FDA-Public Use
  Company Number: TPG2003A00378

PATIENT
  Age: 33 Year
  Sex: Female

DRUGS (2)
  1. ENANTONE-GYN MONATSDEPOT (LEUPROLIDE ACETATE) (3.75 MILLIGRAM, INJECTI [Suspect]
     Indication: IN VITRO FERTILISATION
     Dosage: 3.75 (3.75 MG, 1 IN 1 W), SUBCUTANEOUS
     Route: 058
     Dates: start: 20030929, end: 20030929
  2. CIPRAMIL (CITALOPRAM HYDROBROMIDE) (20 MILLIGRAM, TABLETS) [Concomitant]

REACTIONS (24)
  - ABNORMAL BEHAVIOUR [None]
  - APALLIC SYNDROME [None]
  - BLOOD PRESSURE ABNORMAL [None]
  - BLOOD PYRUVIC ACID INCREASED [None]
  - CEREBRAL INFARCTION [None]
  - CEREBRAL ISCHAEMIA [None]
  - CEREBROVASCULAR ACCIDENT [None]
  - COAGULATION FACTOR VIII LEVEL INCREASED [None]
  - COAGULOPATHY [None]
  - CONGENITAL ATRIAL SEPTAL DEFECT [None]
  - DIPLOPIA [None]
  - DISTURBANCE IN ATTENTION [None]
  - FACIAL PARESIS [None]
  - FATIGUE [None]
  - HEADACHE [None]
  - HEMIPARESIS [None]
  - HYPERREFLEXIA [None]
  - HYPOAESTHESIA [None]
  - INFECTION [None]
  - MENTAL DISORDER [None]
  - MUSCULAR WEAKNESS [None]
  - PLATELET AGGREGATION DECREASED [None]
  - SUPRAVENTRICULAR TACHYCARDIA [None]
  - THROMBOSIS [None]
